FAERS Safety Report 9171161 (Version 1)
Quarter: 2013Q1

REPORT INFORMATION
  Report Type: Spontaneous
  Country: US (occurrence: None)
  Receive Date: 20130312
  Receipt Date: 20130312
  Transmission Date: 20140127
  Serious: Yes (Hospitalization)
  Sender: FDA-Public Use
  Company Number: SYM-2013-01501

PATIENT
  Age: 56 Year
  Sex: Male

DRUGS (3)
  1. WELLBUTRIN [Suspect]
     Indication: PRODUCT USED FOR UNKNOWN INDICATION
     Dosage: UNKNOWN DOSING?
     Route: 048
     Dates: start: 20110928
  2. IMITREX [Suspect]
     Indication: PRODUCT USED FOR UNKNOWN INDICATION
     Dosage: UNKNOWN, SUBCUTANEOUS
     Route: 058
     Dates: start: 20110928
  3. GSK AUTOINJECTOR (OTHER THERAPEUTIC PRODUCTS) (AUTO-INJECTOR) (NULL) [Suspect]
     Indication: PRODUCT USED FOR UNKNOWN INDICATION
     Dosage: UNKNOWN SUBCUTANEOUS?
     Route: 058
     Dates: start: 20110928

REACTIONS (1)
  - Investigation [None]
